FAERS Safety Report 16746919 (Version 1)
Quarter: 2019Q3

REPORT INFORMATION
  Report Type: Spontaneous
  Country: US (occurrence: US)
  Receive Date: 20190709
  Receipt Date: 20190709
  Transmission Date: 20191005
  Serious: Yes (Hospitalization)
  Sender: FDA-Public Use
  Company Number: None

PATIENT
  Age: 56 Year
  Sex: Male
  Weight: 30.84 kg

DRUGS (5)
  1. NIVOLUMAB 240MG [Suspect]
     Active Substance: NIVOLUMAB
     Indication: SARCOMA
     Route: 042
  2. LOPRESSOR [Suspect]
     Active Substance: METOPROLOL TARTRATE
  3. IPILIMUMAB 1MG/KG [Suspect]
     Active Substance: IPILIMUMAB
     Indication: SARCOMA
     Route: 042
     Dates: start: 20181003
  4. XARELTO [Suspect]
     Active Substance: RIVAROXABAN
  5. ELIQUIS [Suspect]
     Active Substance: APIXABAN

REACTIONS (12)
  - Hyponatraemia [None]
  - Abscess soft tissue [None]
  - Wound infection [None]
  - Gram stain negative [None]
  - Scab [None]
  - Bacillus infection [None]
  - Cellulitis [None]
  - Tumour necrosis [None]
  - Swelling [None]
  - Sepsis [None]
  - Metastases to lung [None]
  - Malignant neoplasm progression [None]

NARRATIVE: CASE EVENT DATE: 20181202
